FAERS Safety Report 8598314-7 (Version None)
Quarter: 2012Q3

REPORT INFORMATION
  Report Type: 
  Country: None (occurrence: None)
  Receive Date: 20120806
  Receipt Date: 20120806
  Transmission Date: 20120928
  Serious: No
  Sender: FDA-Public Use
  Company Number: None

PATIENT
  Age: 50 Year
  Sex: Male
  Weight: 104.3273 kg

DRUGS (1)
  1. CYMBALTA [Suspect]
     Dosage: 1 CAP EVERY NIGHT PO
     Route: 048
     Dates: start: 20120726, end: 20120731

REACTIONS (2)
  - NAUSEA [None]
  - DIZZINESS POSTURAL [None]
